FAERS Safety Report 18281279 (Version 45)
Quarter: 2025Q1

REPORT INFORMATION
  Report Type: Report from Study
  Country: US (occurrence: US)
  Receive Date: 20200918
  Receipt Date: 20250320
  Transmission Date: 20250409
  Serious: Yes (Hospitalization, Other)
  Sender: TAKEDA
  Company Number: US-SHIRE-US202030251

PATIENT
  Age: 82 Year
  Sex: Female
  Weight: 73 kg

DRUGS (57)
  1. HUMAN IMMUNOGLOBULIN G\HYALURONIDASE RECOMBINANT HUMAN [Suspect]
     Active Substance: HUMAN IMMUNOGLOBULIN G\HYALURONIDASE (HUMAN RECOMBINANT)
     Indication: Immunodeficiency common variable
     Dosage: 47.5 GRAM, Q4WEEKS
     Dates: start: 20150826
  2. HUMAN IMMUNOGLOBULIN G\HYALURONIDASE RECOMBINANT HUMAN [Suspect]
     Active Substance: HUMAN IMMUNOGLOBULIN G\HYALURONIDASE (HUMAN RECOMBINANT)
     Indication: Primary immunodeficiency syndrome
  3. HUMAN IMMUNOGLOBULIN G\HYALURONIDASE RECOMBINANT HUMAN [Suspect]
     Active Substance: HUMAN IMMUNOGLOBULIN G\HYALURONIDASE (HUMAN RECOMBINANT)
  4. HUMAN IMMUNOGLOBULIN G\HYALURONIDASE RECOMBINANT HUMAN [Suspect]
     Active Substance: HUMAN IMMUNOGLOBULIN G\HYALURONIDASE (HUMAN RECOMBINANT)
     Dosage: 37.5 GRAM, Q3WEEKS
  5. CUVITRU [Suspect]
     Active Substance: HUMAN IMMUNOGLOBULIN G
     Indication: Immune system disorder
     Dosage: 25 GRAM, Q2WEEKS
  6. CUVITRU [Suspect]
     Active Substance: HUMAN IMMUNOGLOBULIN G
     Indication: Hypergammaglobulinaemia
  7. DIPHENHYDRAMINE [Concomitant]
     Active Substance: DIPHENHYDRAMINE
  8. SYMBICORT [Concomitant]
     Active Substance: BUDESONIDE\FORMOTEROL FUMARATE DIHYDRATE
  9. POTASSIUM [Concomitant]
     Active Substance: POTASSIUM
  10. VITAMIN D3 [Concomitant]
     Active Substance: CHOLECALCIFEROL
  11. EPINEPHRINE [Concomitant]
     Active Substance: EPINEPHRINE
  12. FLUTICASONE PROPIONATE [Concomitant]
     Active Substance: FLUTICASONE PROPIONATE
  13. LIOTHYRONINE SODIUM [Concomitant]
     Active Substance: LIOTHYRONINE SODIUM
  14. LEVOTHYROXINE SODIUM [Concomitant]
     Active Substance: LEVOTHYROXINE SODIUM
  15. PROLIA [Concomitant]
     Active Substance: DENOSUMAB
  16. SUDAFED [Concomitant]
     Active Substance: PSEUDOEPHEDRINE HYDROCHLORIDE
  17. METHENAMINE HIPPURATE [Concomitant]
     Active Substance: METHENAMINE HIPPURATE
  18. ACETAMINOPHEN [Concomitant]
     Active Substance: ACETAMINOPHEN
  19. NALTREXONE HYDROCHLORIDE [Concomitant]
     Active Substance: NALTREXONE HYDROCHLORIDE
  20. VITAMIN E [Concomitant]
     Active Substance: .ALPHA.-TOCOPHEROL
  21. ALLEGRA-D [Concomitant]
     Active Substance: FEXOFENADINE HYDROCHLORIDE\PSEUDOEPHEDRINE HYDROCHLORIDE
  22. CREON [Concomitant]
     Active Substance: PANCRELIPASE AMYLASE\PANCRELIPASE LIPASE\PANCRELIPASE PROTEASE
  23. SODIUM CHLORIDE [Concomitant]
     Active Substance: SODIUM CHLORIDE
  24. Cosamin [Concomitant]
  25. LOSARTAN AND HYDROCHLOROTHIAZIDE [Concomitant]
     Active Substance: HYDROCHLOROTHIAZIDE\LOSARTAN POTASSIUM
  26. FISH OIL [Concomitant]
     Active Substance: FISH OIL
  27. Omega [Concomitant]
  28. COLLAGEN [Concomitant]
     Active Substance: COLLAGEN
  29. CYCLOBENZAPRINE HYDROCHLORIDE [Concomitant]
     Active Substance: CYCLOBENZAPRINE HYDROCHLORIDE
  30. MACROBID [Concomitant]
     Active Substance: NITROFURANTOIN\NITROFURANTOIN MONOHYDRATE
  31. MONTELUKAST SODIUM [Concomitant]
     Active Substance: MONTELUKAST SODIUM
  32. SULFAMETHOXAZOLE\TRIMETHOPRIM [Concomitant]
     Active Substance: SULFAMETHOXAZOLE\TRIMETHOPRIM
  33. VITAMIN C [Concomitant]
     Active Substance: ASCORBIC ACID
  34. PANTOPRAZOLE SODIUM [Concomitant]
     Active Substance: PANTOPRAZOLE SODIUM
  35. MODERNA COVID-19 VACCINE [Concomitant]
     Active Substance: ELASOMERAN
  36. ESTRING [Concomitant]
     Active Substance: ESTRADIOL
  37. MAGNESIUM CITRATE [Concomitant]
     Active Substance: MAGNESIUM CITRATE
  38. CRANBERRY [Concomitant]
     Active Substance: CRANBERRY
  39. ZYRTEC [Concomitant]
     Active Substance: CETIRIZINE HYDROCHLORIDE
  40. CYSTEX [Concomitant]
     Active Substance: METHENAMINE\SODIUM SALICYLATE
  41. BACTRIM [Concomitant]
     Active Substance: SULFAMETHOXAZOLE\TRIMETHOPRIM
  42. Propionate [Concomitant]
  43. TRIMETHOPRIM [Concomitant]
     Active Substance: TRIMETHOPRIM
  44. MAGNESIUM [Concomitant]
     Active Substance: MAGNESIUM
  45. WAL FEX [Concomitant]
     Active Substance: FEXOFENADINE HYDROCHLORIDE
  46. LOSARTAN [Concomitant]
     Active Substance: LOSARTAN
  47. ACETAZOLAMIDE [Concomitant]
     Active Substance: ACETAZOLAMIDE
  48. DIPHENHYDRAMINE HYDROCHLORIDE [Concomitant]
     Active Substance: DIPHENHYDRAMINE HYDROCHLORIDE
  49. DUPIXENT [Concomitant]
     Active Substance: DUPILUMAB
  50. METHENAMINE MANDELATE [Concomitant]
     Active Substance: METHENAMINE MANDELATE
  51. PSEUDOEPHEDRINE HYDROCHLORIDE [Concomitant]
     Active Substance: PSEUDOEPHEDRINE HYDROCHLORIDE
  52. B active [Concomitant]
  53. ZINC GLUCONATE [Concomitant]
     Active Substance: ZINC GLUCONATE
  54. VITAMIN E [Concomitant]
     Active Substance: .ALPHA.-TOCOPHEROL
  55. IVERMECTIN [Concomitant]
     Active Substance: IVERMECTIN
  56. LIDOCAINE [Concomitant]
     Active Substance: LIDOCAINE
  57. HYDROCHLOROTHIAZIDE [Concomitant]
     Active Substance: HYDROCHLOROTHIAZIDE

REACTIONS (55)
  - Pancreatitis [Unknown]
  - Loss of consciousness [Unknown]
  - Haemorrhage [Unknown]
  - Choking [Recovering/Resolving]
  - Pneumonia [Unknown]
  - Pneumonia fungal [Recovered/Resolved]
  - Lower respiratory tract infection [Recovered/Resolved]
  - Gastric infection [Unknown]
  - Sinonasal obstruction [Unknown]
  - Seasonal allergy [Unknown]
  - Tooth abscess [Unknown]
  - Tooth infection [Unknown]
  - Multiple allergies [Not Recovered/Not Resolved]
  - Spinal pain [Unknown]
  - Illness [Unknown]
  - Alopecia [Unknown]
  - Skin disorder [Unknown]
  - Hair disorder [Unknown]
  - Nail disorder [Unknown]
  - Increased appetite [Unknown]
  - Weight increased [Unknown]
  - Fungal infection [Unknown]
  - Sneezing [Unknown]
  - Fracture [Unknown]
  - Cold urticaria [Unknown]
  - Food intolerance [Unknown]
  - Bronchitis [Not Recovered/Not Resolved]
  - Vitamin B12 decreased [Unknown]
  - Eye pruritus [Unknown]
  - Infection [Unknown]
  - Fungal pharyngitis [Recovered/Resolved]
  - Infusion site discharge [Unknown]
  - Upper respiratory tract infection [Unknown]
  - Influenza [Not Recovered/Not Resolved]
  - Discomfort [Unknown]
  - Gastroenteritis viral [Unknown]
  - Asthma [Unknown]
  - Infusion site haemorrhage [Unknown]
  - Myalgia [Unknown]
  - Abdominal distension [Unknown]
  - Fatigue [Unknown]
  - Hypersensitivity [Unknown]
  - Vomiting [Unknown]
  - Infusion site pain [Unknown]
  - Diarrhoea [Not Recovered/Not Resolved]
  - COVID-19 [Unknown]
  - Cystitis [Unknown]
  - Candida infection [Unknown]
  - White blood cell count decreased [Unknown]
  - Ear infection [Recovered/Resolved]
  - Sinusitis [Unknown]
  - Inappropriate schedule of product administration [Unknown]
  - Lung opacity [Unknown]
  - Cough [Not Recovered/Not Resolved]
  - Arthralgia [Unknown]

NARRATIVE: CASE EVENT DATE: 20201123
